FAERS Safety Report 5831230-X (Version None)
Quarter: 2008Q3

REPORT INFORMATION
  Report Type: 
  Country: None (occurrence: None)
  Receive Date: 20080801
  Receipt Date: 20071109
  Transmission Date: 20090109
  Serious: No
  Sender: FDA-Public Use
  Company Number: US-BRISTOL-MYERS SQUIBB COMPANY-13977467

PATIENT
  Age: 76 Year
  Sex: Female
  Weight: 77 kg

DRUGS (6)
  1. COUMADIN [Suspect]
     Dosage: 5MG 1/2 TABLET 6DAY/WEEK AND 1 TABLET ON SUNDAYS WITHINLAST2WEEKS.INCREASED TO 5MG1TABLET/DAILY.
     Route: 048
     Dates: start: 20071001
  2. VITAMIN B-12 [Suspect]
  3. TOPROL-XL [Concomitant]
  4. DIOVAN [Concomitant]
  5. DIGOXIN [Concomitant]
  6. TYLENOL [Concomitant]

REACTIONS (1)
  - INTERNATIONAL NORMALISED RATIO DECREASED [None]
